FAERS Safety Report 4881517-2 (Version None)
Quarter: 2006Q1

REPORT INFORMATION
  Report Type: 
  Country: None (occurrence: None)
  Receive Date: 20060116
  Receipt Date: 20060111
  Transmission Date: 20060701
  Serious: Yes (Hospitalization)
  Sender: FDA-Public Use
  Company Number: US-GLAXOSMITHKLINE-A0588996A

PATIENT
  Age: 88 Year
  Sex: Female

DRUGS (1)
  1. VALTREX [Suspect]
     Indication: HERPES OPHTHALMIC
     Dosage: 1G THREE TIMES PER DAY
     Route: 048

REACTIONS (2)
  - DYSPNOEA [None]
  - SINUS TACHYCARDIA [None]
